FAERS Safety Report 7592331-1 (Version None)
Quarter: 2011Q3

REPORT INFORMATION
  Report Type: 
  Country: None (occurrence: None)
  Receive Date: 20110706
  Receipt Date: 20110627
  Transmission Date: 20111222
  Serious: Yes (Death, Life-Threatening, Hospitalization)
  Sender: FDA-Public Use
  Company Number: AU-MPIJNJ-2010-04097

PATIENT

DRUGS (9)
  1. VELCADE [Suspect]
     Dosage: 3.5 MG, UNK
     Route: 042
     Dates: start: 20100708
  2. VELCADE [Suspect]
     Dosage: 3.5 MG, UNK
     Route: 042
     Dates: start: 20100715, end: 20100715
  3. DEXAMETHASONE [Suspect]
     Dosage: 40 MG, UNK
     Route: 042
     Dates: start: 20100713, end: 20100713
  4. DEXAMETHASONE [Suspect]
     Dosage: 40 MG, UNK
     Route: 042
     Dates: start: 20100715, end: 20100715
  5. DEXAMETHASONE [Suspect]
     Indication: MULTIPLE MYELOMA
     Dosage: 40 MG, UNK
     Route: 042
     Dates: start: 20100703
  6. VELCADE [Suspect]
     Indication: MULTIPLE MYELOMA
     Dosage: 3.5 MG, UNK
     Route: 042
  7. VELCADE [Suspect]
     Dosage: 3.5 MG, UNK
     Route: 042
     Dates: start: 20100713, end: 20100713
  8. VELCADE [Suspect]
     Dosage: 3.5 MG, UNK
     Route: 042
     Dates: start: 20100714, end: 20100714
  9. DEXAMETHASONE [Suspect]
     Dosage: 40 MG, UNK
     Route: 042
     Dates: start: 20100714, end: 20100714

REACTIONS (11)
  - VITAL CAPACITY DECREASED [None]
  - INAPPROPRIATE SCHEDULE OF DRUG ADMINISTRATION [None]
  - NAUSEA [None]
  - DEATH [None]
  - NEUROPATHY PERIPHERAL [None]
  - BRADYCARDIA [None]
  - VOMITING [None]
  - THROMBOCYTOPENIA [None]
  - OVERDOSE [None]
  - DIARRHOEA [None]
  - PARALYSIS [None]
